FAERS Safety Report 7816677-4 (Version None)
Quarter: 2011Q4

REPORT INFORMATION
  Report Type: 
  Country: None (occurrence: None)
  Receive Date: 20111017
  Receipt Date: 20111012
  Transmission Date: 20120403
  Serious: No
  Sender: FDA-Public Use
  Company Number: US-PFIZER INC-2011244172

PATIENT
  Sex: Female
  Weight: 68.027 kg

DRUGS (3)
  1. MULTI-VITAMINS [Concomitant]
     Dosage: UNK
  2. MELATONIN [Concomitant]
     Dosage: UNK
  3. IBUPROFEN (ADVIL) [Suspect]
     Indication: MYALGIA
     Dosage: UNK, AS NEEDED
     Route: 048
     Dates: start: 20110301, end: 20111011

REACTIONS (1)
  - NIGHT SWEATS [None]
